FAERS Safety Report 16154752 (Version 3)
Quarter: 2019Q2

REPORT INFORMATION
  Report Type: Spontaneous
  Country: US (occurrence: US)
  Receive Date: 20190403
  Receipt Date: 20190611
  Transmission Date: 20190711
  Serious: No
  Sender: FDA-Public Use
  Company Number: US-ASTRAZENECA-2007BM01486

PATIENT
  Age: 21565 Day
  Sex: Male
  Weight: 74.8 kg

DRUGS (20)
  1. LISINOPRIL. [Suspect]
     Active Substance: LISINOPRIL
     Indication: BLOOD CHOLESTEROL ABNORMAL
     Route: 048
  2. BYDUREON [Suspect]
     Active Substance: EXENATIDE
     Indication: INSULIN-REQUIRING TYPE 2 DIABETES MELLITUS
     Route: 058
  3. STELARA [Concomitant]
     Active Substance: USTEKINUMAB
     Indication: PSORIASIS
  4. BYDUREON [Suspect]
     Active Substance: EXENATIDE
     Indication: INSULIN-REQUIRING TYPE 2 DIABETES MELLITUS
     Route: 058
     Dates: start: 20120420
  5. PRANDIN [Concomitant]
     Active Substance: REPAGLINIDE
     Route: 048
  6. ALLOPURINOL. [Concomitant]
     Active Substance: ALLOPURINOL
     Indication: NEPHROLITHIASIS
     Route: 048
  7. BYDUREON BCISE [Suspect]
     Active Substance: EXENATIDE
     Indication: TYPE 2 DIABETES MELLITUS
     Route: 058
     Dates: start: 201801
  8. FINASTERIDE. [Concomitant]
     Active Substance: FINASTERIDE
     Indication: PROPHYLAXIS
     Route: 048
  9. PANTOPRAZOLE [Concomitant]
     Active Substance: PANTOPRAZOLE
     Indication: GASTROOESOPHAGEAL REFLUX DISEASE
     Route: 048
  10. ACTOS [Concomitant]
     Active Substance: PIOGLITAZONE HYDROCHLORIDE
     Route: 048
  11. HUMALIN [Concomitant]
     Active Substance: INSULIN NOS
     Indication: INSULIN-REQUIRING TYPE 2 DIABETES MELLITUS
     Route: 048
  12. ATORVASTATIN [Concomitant]
     Active Substance: ATORVASTATIN
     Indication: BLOOD CHOLESTEROL ABNORMAL
     Route: 048
  13. HUMALOG [Concomitant]
     Active Substance: INSULIN LISPRO
     Indication: INSULIN-REQUIRING TYPE 2 DIABETES MELLITUS
     Route: 048
  14. BYETTA [Suspect]
     Active Substance: EXENATIDE
     Indication: TYPE 2 DIABETES MELLITUS
     Route: 058
     Dates: start: 200608
  15. BYDUREON [Suspect]
     Active Substance: EXENATIDE
     Indication: INSULIN-REQUIRING TYPE 2 DIABETES MELLITUS
     Dosage: SDT 2 MG ONCE A WEEK
     Route: 058
     Dates: start: 201801
  16. SUCRALFATE. [Concomitant]
     Active Substance: SUCRALFATE
     Indication: GASTRIC PH DECREASED
     Route: 048
  17. METFORMIN [Concomitant]
     Active Substance: METFORMIN HYDROCHLORIDE
     Indication: BLOOD GLUCOSE ABNORMAL
     Dosage: 1000.0G UNKNOWN
  18. BYETTA [Suspect]
     Active Substance: EXENATIDE
     Indication: TYPE 2 DIABETES MELLITUS
     Route: 058
     Dates: end: 20120419
  19. BYETTA [Suspect]
     Active Substance: EXENATIDE
     Indication: TYPE 2 DIABETES MELLITUS
     Route: 058
  20. GEMFIBROZIL. [Concomitant]
     Active Substance: GEMFIBROZIL
     Indication: BLOOD TRIGLYCERIDES ABNORMAL
     Route: 048

REACTIONS (12)
  - Injection site haemorrhage [Recovered/Resolved]
  - Incorrect dose administered by device [Unknown]
  - Feeling jittery [Not Recovered/Not Resolved]
  - Blood glucose increased [Not Recovered/Not Resolved]
  - Wrong technique in device usage process [Unknown]
  - Device issue [Unknown]
  - Anxiety [Not Recovered/Not Resolved]
  - Underdose [Not Recovered/Not Resolved]
  - Device leakage [Unknown]
  - Off label use [Not Recovered/Not Resolved]
  - Nervousness [Not Recovered/Not Resolved]
  - Blood glucose decreased [Unknown]

NARRATIVE: CASE EVENT DATE: 20060806
